FAERS Safety Report 7411795-7 (Version None)
Quarter: 2011Q2

REPORT INFORMATION
  Report Type: 
  Country: None (occurrence: None)
  Receive Date: 20110413
  Receipt Date: 20110124
  Transmission Date: 20111010
  Serious: Yes (Other)
  Sender: FDA-Public Use
  Company Number: US-BRISTOL-MYERS SQUIBB COMPANY-15506223

PATIENT
  Age: 70 Year
  Sex: Male

DRUGS (2)
  1. ERBITUX [Suspect]
     Dosage: OFF THE TREATMENT FOR 5 WEEKS
  2. IRINOTECAN HCL [Suspect]
     Dosage: OFF THE TREATMENT FOR 5 WEEKS

REACTIONS (4)
  - SKIN FISSURES [None]
  - PRURITUS [None]
  - OEDEMA [None]
  - RASH [None]
